FAERS Safety Report 10334923 (Version 2)
Quarter: 2014Q4

REPORT INFORMATION
  Report Type: Spontaneous
  Country: IT (occurrence: IT)
  Receive Date: 20140723
  Receipt Date: 20141029
  Transmission Date: 20150528
  Serious: Yes (Hospitalization, Other)
  Sender: FDA-Public Use
  Company Number: IT-009507513-1407ITA007661

PATIENT
  Age: 71 Year
  Sex: Female

DRUGS (4)
  1. MINIAS [Concomitant]
     Active Substance: LORMETAZEPAM
     Dosage: STRENGTH: 2.5 MG/ML, FORMULATION: ORAL DROPS
     Route: 048
  2. XERISTAR [Concomitant]
     Active Substance: DULOXETINE HYDROCHLORIDE
     Dosage: UNK
     Route: 048
  3. REMERON [Suspect]
     Active Substance: MIRTAZAPINE
     Indication: DRUG ABUSE
     Dosage: TOTAL DAILY DOSE 360 MG, FREQUENCY: TOTAL
     Route: 048
     Dates: start: 20140526, end: 20140526
  4. DILATREND [Concomitant]
     Active Substance: CARVEDILOL
     Dosage: UNK
     Route: 048

REACTIONS (2)
  - Drug abuse [Recovered/Resolved]
  - Loss of consciousness [Recovered/Resolved]

NARRATIVE: CASE EVENT DATE: 20140526
